FAERS Safety Report 10147127 (Version 1)
Quarter: 2014Q2

REPORT INFORMATION
  Report Type: Report from Study
  Country: US (occurrence: US)
  Receive Date: 20140501
  Receipt Date: 20140501
  Transmission Date: 20141212
  Serious: Yes (Death)
  Sender: FDA-Public Use
  Company Number: US-PURDUE-USA-2014-0113388

PATIENT
  Age: 37 Year
  Sex: Male

DRUGS (1)
  1. OXY CR TAB [Suspect]
     Indication: LEUKAEMIA
     Dosage: 10 MG, Q12H
     Route: 048
     Dates: start: 20140319, end: 20140420

REACTIONS (1)
  - Malignant neoplasm progression [Fatal]
